FAERS Safety Report 4295413-5 (Version None)
Quarter: 2004Q1

REPORT INFORMATION
  Report Type: 
  Country: None (occurrence: None)
  Receive Date: 20040216
  Receipt Date: 20030721
  Transmission Date: 20041129
  Serious: No
  Sender: FDA-Public Use
  Company Number: US-GLAXOSMITHKLINE-A0418430A

PATIENT
  Sex: Female

DRUGS (3)
  1. LAMICTAL [Suspect]
     Route: 048
     Dates: start: 20030701, end: 20030718
  2. DEPAKOTE [Concomitant]
  3. LITHIUM CARBONATE [Concomitant]
     Dosage: 450MG TWICE PER DAY

REACTIONS (2)
  - RASH [None]
  - RASH MACULAR [None]
